FAERS Safety Report 13850800 (Version 2)
Quarter: 2017Q3

REPORT INFORMATION
  Report Type: Spontaneous
  Country: DE (occurrence: DE)
  Receive Date: 20170809
  Receipt Date: 20170816
  Transmission Date: 20171127
  Serious: Yes (Other)
  Sender: FDA-Public Use
  Company Number: DE-GLAXOSMITHKLINE-DE2017GSK123020

PATIENT
  Age: 93 Year
  Sex: Female

DRUGS (5)
  1. VOLTAREN [Suspect]
     Active Substance: DICLOFENAC SODIUM
     Indication: SPINAL COLUMN STENOSIS
  2. METAMIZOLE [Concomitant]
     Active Substance: METAMIZOLE
  3. VOLTAREN [Suspect]
     Active Substance: DICLOFENAC SODIUM
     Indication: PAIN
     Dosage: UNK, PRN
  4. VOLTAREN [Suspect]
     Active Substance: DICLOFENAC SODIUM
     Indication: SPINAL COLUMN STENOSIS
  5. VOLTAREN [Suspect]
     Active Substance: DICLOFENAC SODIUM
     Indication: PAIN
     Dosage: UNK, PRN
     Route: 065

REACTIONS (5)
  - Prescription drug used without a prescription [Unknown]
  - Pelvic fracture [Unknown]
  - Drug administered to patient of inappropriate age [Unknown]
  - Fall [Unknown]
  - Renal failure [Unknown]
